FAERS Safety Report 7207208-0 (Version None)
Quarter: 2011Q1

REPORT INFORMATION
  Report Type: 
  Country: None (occurrence: None)
  Receive Date: 20110103
  Receipt Date: 20101227
  Transmission Date: 20110831
  Serious: Yes (Hospitalization)
  Sender: FDA-Public Use
  Company Number: DE-ROCHE-747843

PATIENT
  Sex: Female
  Weight: 86 kg

DRUGS (3)
  1. PACLITAXEL [Suspect]
     Dosage: DATE OF LAST DOSE PRIOR TO SAE 7 DEC 2010, PERMANENTLY DISCONTINUED.
     Route: 042
     Dates: start: 20101116, end: 20101222
  2. CAPECITABINE [Suspect]
     Dosage: DRUG GIVEN DAILY, DAYS 1-14 ORALLY DATE OF LAST DOSE PRIOR TO SAE:11 DEC 2010 ,
     Route: 048
     Dates: start: 20101116, end: 20101222
  3. RAMIPRIL [Concomitant]
     Dates: start: 20000101

REACTIONS (1)
  - PARTIAL SEIZURES [None]
